FAERS Safety Report 17796606 (Version 3)
Quarter: 2020Q2

REPORT INFORMATION
  Report Type: Report from Study
  Country: None (occurrence: US)
  Receive Date: 20200518
  Receipt Date: 20200625
  Transmission Date: 20200714
  Serious: Yes (Other)
  Sender: FDA-Public Use
  Company Number: US-ABBVIE-20K-163-3363449-00

PATIENT
  Age: 77 Year
  Sex: Female

DRUGS (4)
  1. MOBIC [Suspect]
     Active Substance: MELOXICAM
     Indication: PRODUCT USED FOR UNKNOWN INDICATION
     Route: 065
     Dates: end: 201912
  2. HUMIRA [Suspect]
     Active Substance: ADALIMUMAB
     Route: 058
  3. HUMIRA [Suspect]
     Active Substance: ADALIMUMAB
     Indication: RHEUMATOID ARTHRITIS
     Route: 058
     Dates: start: 2010
  4. MOTRIN [Concomitant]
     Active Substance: IBUPROFEN
     Indication: PRODUCT USED FOR UNKNOWN INDICATION

REACTIONS (16)
  - Malignant melanoma [Recovered/Resolved]
  - Incorrect dose administered [Unknown]
  - Haemorrhage [Unknown]
  - Wrong technique in product usage process [Unknown]
  - Post procedural complication [Unknown]
  - Soft tissue excision [Unknown]
  - Musculoskeletal disorder [Unknown]
  - Arthropathy [Unknown]
  - Arthralgia [Unknown]
  - Hypoaesthesia [Unknown]
  - Muscular weakness [Unknown]
  - Transient ischaemic attack [Unknown]
  - Skin ulcer haemorrhage [Not Recovered/Not Resolved]
  - Carpal tunnel syndrome [Unknown]
  - Arthralgia [Recovering/Resolving]
  - Injection site bruising [Unknown]

NARRATIVE: CASE EVENT DATE: 2015
